FAERS Safety Report 8054357-3 (Version None)
Quarter: 2012Q1

REPORT INFORMATION
  Report Type: 
  Country: None (occurrence: None)
  Receive Date: 20120118
  Receipt Date: 20120113
  Transmission Date: 20120608
  Serious: Yes (Death)
  Sender: FDA-Public Use
  Company Number: PHEH2012US001447

PATIENT
  Sex: Male

DRUGS (1)
  1. GLEEVEC [Suspect]
     Indication: CHRONIC MYELOID LEUKAEMIA
     Dosage: 400 MG (ON MONDAY, WEDNESDAY AND FRIDAY AFTER DIALYSIS)
     Route: 048
     Dates: start: 20101210

REACTIONS (1)
  - DEATH [None]
